FAERS Safety Report 8180959-X (Version None)
Quarter: 2012Q1

REPORT INFORMATION
  Report Type: 
  Country: None (occurrence: None)
  Receive Date: 20120302
  Receipt Date: 20120221
  Transmission Date: 20120608
  Serious: Yes (Death, Hospitalization)
  Sender: FDA-Public Use
  Company Number: AT-PFIZER INC-2012018616

PATIENT
  Age: 51 Year
  Sex: Female
  Weight: 68 kg

DRUGS (8)
  1. BLINDED THERAPY [Suspect]
     Indication: COLON CANCER METASTATIC
     Dosage: 8 MG/KG, CYCLIC, EVERY 14 DAYS
     Route: 042
     Dates: start: 20111125, end: 20111227
  2. CARVEDILOL [Concomitant]
     Indication: HYPERTENSION
     Dosage: UNK
     Dates: start: 20100801
  3. PANTOPRAZOLE SODIUM [Concomitant]
     Indication: ANTACID THERAPY
     Dosage: UNK
     Dates: start: 20100801
  4. LEUCOVORIN CALCIUM [Suspect]
     Indication: COLON CANCER METASTATIC
     Dosage: 400 MG/M2, CYCLIC, DAY 1 EVERY 14 DAYS
     Route: 042
     Dates: start: 20111125, end: 20111227
  5. FLUOROURACIL [Suspect]
     Dosage: 2400 MG/M2, CYCLIC, DAYS 1 AND 2 EVERY 14 DAYS
     Route: 042
     Dates: start: 20111125, end: 20111227
  6. FLUOROURACIL [Suspect]
     Indication: COLON CANCER METASTATIC
     Dosage: 400 MG/M2, CYCLIC, DAY 1 EVERY 14 DAYS
     Route: 040
     Dates: start: 20111125, end: 20111227
  7. IRINOTECAN HCL [Suspect]
     Indication: COLON CANCER METASTATIC
     Dosage: 180 MG/M2, CYCLIC, DAY 1 EVERY 14 DAYS
     Route: 042
     Dates: start: 20111125, end: 20111227
  8. LISINOPRIL [Concomitant]
     Indication: HYPERTENSION
     Dosage: UNK
     Dates: start: 20100401

REACTIONS (1)
  - BRONCHOPULMONARY ASPERGILLOSIS [None]
